FAERS Safety Report 12083379 (Version 1)
Quarter: 2016Q1

REPORT INFORMATION
  Report Type: Spontaneous
  Country: US (occurrence: US)
  Receive Date: 20160217
  Receipt Date: 20160217
  Transmission Date: 20160526
  Serious: No
  Sender: FDA-Public Use
  Company Number: US-MYLANLABS-2015M1021914

PATIENT
  Age: 4 Year
  Sex: Male

DRUGS (1)
  1. EPIPEN JR [Suspect]
     Active Substance: EPINEPHRINE
     Dosage: UNK
     Dates: start: 20150628, end: 20150628

REACTIONS (4)
  - Injection site injury [Recovered/Resolved]
  - Expired product administered [Recovered/Resolved]
  - Accidental exposure to product by child [Recovered/Resolved]
  - Injection site coldness [Not Recovered/Not Resolved]

NARRATIVE: CASE EVENT DATE: 20150628
